FAERS Safety Report 7880374-X (Version None)
Quarter: 2011Q4

REPORT INFORMATION
  Report Type: 
  Country: None (occurrence: None)
  Receive Date: 20111101
  Receipt Date: 20111026
  Transmission Date: 20120403
  Serious: Yes (Death, Hospitalization)
  Sender: FDA-Public Use
  Company Number: PHHY2011JP95135

PATIENT
  Age: 76 Year
  Sex: Male
  Weight: 64 kg

DRUGS (8)
  1. MEROPENEM [Suspect]
     Indication: PNEUMONIA
     Dosage: 2 G, DAILY
  2. CYTOTEC [Concomitant]
     Indication: INTESTINAL ULCER
     Dosage: UNK
     Route: 048
  3. AMINO ACID INJ [Concomitant]
     Indication: HYPOALBUMINAEMIA
     Dosage: UNK
  4. NEORAL [Suspect]
     Indication: APLASIA PURE RED CELL
     Dosage: 200 MG, DAILY
     Route: 048
  5. CYTARABINE [Suspect]
     Indication: NEOPLASM
     Dosage: 100 MG, DAILY
     Route: 048
  6. FUNGUARD [Concomitant]
     Indication: PNEUMONIA
     Dosage: 150 MG, UNK
  7. HYDREA [Concomitant]
     Indication: NEOPLASM
     Dosage: UNK
     Route: 048
  8. LIVACT [Concomitant]
     Indication: HYPOALBUMINAEMIA
     Dosage: UNK
     Route: 048

REACTIONS (3)
  - CHRONIC MYELOID LEUKAEMIA [None]
  - PNEUMONIA [None]
  - HEPATIC FUNCTION ABNORMAL [None]
